FAERS Safety Report 6588352-8 (Version None)
Quarter: 2010Q1

REPORT INFORMATION
  Report Type: 
  Country: None (occurrence: None)
  Receive Date: 20100218
  Receipt Date: 20100209
  Transmission Date: 20100710
  Serious: Yes (Death)
  Sender: FDA-Public Use
  Company Number: US-ROXANE LABORATORIES, INC.-2010-DE-00752GD

PATIENT
  Age: 50 Year
  Sex: Male

DRUGS (2)
  1. MORPHINE [Suspect]
     Route: 051
  2. DRUG, UNKNOWN [Suspect]
     Route: 051

REACTIONS (1)
  - DRUG ABUSE [None]
